FAERS Safety Report 16804655 (Version 1)
Quarter: 2019Q3

REPORT INFORMATION
  Report Type: Other
  Country: US (occurrence: US)
  Receive Date: 20190913
  Receipt Date: 20190913
  Transmission Date: 20191005
  Serious: No
  Sender: FDA-Public Use
  Company Number: US-AMNEAL PHARMACEUTICALS-2019AMN00072

PATIENT
  Sex: Female

DRUGS (3)
  1. NORETHINDRONE ACETATE. [Suspect]
     Active Substance: NORETHINDRONE ACETATE
     Dosage: 10 MG, DOSE INCREASED TO 2 X 5 MG TABLETS FOR 3 DAYS
     Route: 048
     Dates: start: 20181121, end: 20181122
  2. NORETHINDRONE ACETATE. [Suspect]
     Active Substance: NORETHINDRONE ACETATE
     Indication: POSTMENOPAUSAL HAEMORRHAGE
     Dosage: 5 MG, 2X/DAY
     Route: 048
     Dates: start: 201809
  3. NORETHINDRONE ACETATE. [Suspect]
     Active Substance: NORETHINDRONE ACETATE
     Dosage: 5 MG, 3X/DAY
     Route: 048
     Dates: start: 20181119, end: 20181130

REACTIONS (5)
  - Product solubility abnormal [Unknown]
  - Drug ineffective [Unknown]
  - Uterine haemorrhage [Recovering/Resolving]
  - Product substitution issue [Unknown]
  - Product packaging issue [Unknown]

NARRATIVE: CASE EVENT DATE: 20181116
